FAERS Safety Report 7673460-0 (Version None)
Quarter: 2011Q3

REPORT INFORMATION
  Report Type: 
  Country: None (occurrence: None)
  Receive Date: 20110810
  Receipt Date: 20110808
  Transmission Date: 20111222
  Serious: Yes (Other)
  Sender: FDA-Public Use
  Company Number: US-PFIZER INC-2011182044

PATIENT
  Sex: Male
  Weight: 108.39 kg

DRUGS (4)
  1. LYRICA [Suspect]
     Indication: PAIN IN EXTREMITY
  2. LYRICA [Suspect]
     Indication: NERVOUS SYSTEM DISORDER
     Dosage: 50 MG 3 TO 4 TIMES A DAY
     Dates: start: 20110611, end: 20110625
  3. LYRICA [Suspect]
     Indication: NEUROPATHY PERIPHERAL
     Dosage: 50 MG, 1 TO 2 TIMES A DAY
     Route: 048
     Dates: start: 20110525, end: 20110610
  4. WARFARIN [Concomitant]
     Indication: ANTICOAGULANT THERAPY
     Dosage: UNK

REACTIONS (5)
  - FEELING ABNORMAL [None]
  - DISTURBANCE IN ATTENTION [None]
  - FATIGUE [None]
  - PAIN IN EXTREMITY [None]
  - RESTLESSNESS [None]
